FAERS Safety Report 21119752 (Version 2)
Quarter: 2022Q3

REPORT INFORMATION
  Report Type: Spontaneous
  Country: US (occurrence: US)
  Receive Date: 20220722
  Receipt Date: 20220922
  Transmission Date: 20221027
  Serious: No
  Sender: FDA-Public Use
  Company Number: US-BIOVITRUM-2022US08793

PATIENT
  Sex: Male

DRUGS (1)
  1. DOPTELET [Suspect]
     Active Substance: AVATROMBOPAG MALEATE
     Indication: Thrombocytopenia
     Dates: start: 20220618

REACTIONS (5)
  - Erythema [Unknown]
  - Inflammation [Unknown]
  - Injection site reaction [Unknown]
  - Abdominal pain [Unknown]
  - Fatigue [Unknown]
